FAERS Safety Report 23077219 (Version 2)
Quarter: 2023Q4

REPORT INFORMATION
  Report Type: Report from Study
  Country: US (occurrence: US)
  Receive Date: 20231018
  Receipt Date: 20231020
  Transmission Date: 20240110
  Serious: No
  Sender: FDA-Public Use
  Company Number: US-002147023-NVSC2023US219411

PATIENT
  Age: 8 Year
  Sex: Female

DRUGS (2)
  1. VIJOICE [Suspect]
     Active Substance: ALPELISIB
     Indication: PIK3CA related overgrowth spectrum
     Dosage: 50 MG, QD
     Route: 048
     Dates: start: 20220723, end: 20230828
  2. VIJOICE [Suspect]
     Active Substance: ALPELISIB
     Dosage: 125 MG (TO BE STARTED AT A LATER DATE)
     Route: 048

REACTIONS (2)
  - Haemangioma [Unknown]
  - Product use issue [Unknown]

NARRATIVE: CASE EVENT DATE: 20230828
